FAERS Safety Report 9649862 (Version 1)
Quarter: 2013Q4

REPORT INFORMATION
  Report Type: Spontaneous
  Country: US (occurrence: US)
  Receive Date: 20131028
  Receipt Date: 20131028
  Transmission Date: 20140711
  Serious: Yes (Other)
  Sender: FDA-Public Use
  Company Number: US-NAPPMUNDI-USA-2013-0097704

PATIENT
  Sex: Female

DRUGS (5)
  1. OXYCONTIN TABLETS [Suspect]
     Indication: DRUG ABUSE
     Route: 065
  2. VICODIN [Suspect]
     Indication: DRUG ABUSE
     Route: 065
  3. TYLENOL WITH CODEINE NO.3 [Suspect]
     Indication: DRUG ABUSE
     Route: 065
  4. NORCO [Suspect]
     Indication: DRUG ABUSE
     Route: 065
  5. PERCOCET /00867901/ [Suspect]
     Indication: DRUG ABUSE
     Route: 065

REACTIONS (1)
  - Drug abuse [Recovering/Resolving]
